FAERS Safety Report 8564996-9 (Version None)
Quarter: 2012Q3

REPORT INFORMATION
  Report Type: 
  Country: None (occurrence: None)
  Receive Date: 20120803
  Receipt Date: 20120730
  Transmission Date: 20120928
  Serious: No
  Sender: FDA-Public Use
  Company Number: US-PFIZER INC-2012184836

PATIENT
  Age: 8 Year
  Sex: Female

DRUGS (2)
  1. SERTRALINE HYDROCHLORIDE [Suspect]
     Dosage: UNK
  2. SERTRALINE HYDROCHLORIDE [Suspect]
     Dosage: UNK
     Dates: start: 20120701

REACTIONS (5)
  - OVERDOSE [None]
  - NAUSEA [None]
  - ABDOMINAL DISCOMFORT [None]
  - INSOMNIA [None]
  - PRODUCT DROPPER ISSUE [None]
